FAERS Safety Report 8255482-4 (Version None)
Quarter: 2012Q1

REPORT INFORMATION
  Report Type: 
  Country: None (occurrence: None)
  Receive Date: 20120329
  Receipt Date: 20120320
  Transmission Date: 20120608
  Serious: Yes (Congenital Anomaly)
  Sender: FDA-Public Use
  Company Number: DKLU1066685

PATIENT
  Age: 1 Day
  Sex: Male
  Weight: 8.09 kg

DRUGS (5)
  1. DONORMYL (DOXYLAMINE SUCCINATE) [Suspect]
     Indication: TOXICITY TO VARIOUS AGENTS
     Dosage: 15 MG MILLIGRAM(S), ONCE, TRANSPLACENTAL
     Route: 064
     Dates: start: 20100522, end: 20100522
  2. CIPROFLOXACIN [Concomitant]
  3. DEPAKENE [Suspect]
     Indication: EPILEPSY
     Dosage: 500 MG MILLIGRAM(S), 2 IN 1 D, TRANSPLACENTAL
     Route: 064
     Dates: end: 20100501
  4. KEPPRA [Suspect]
     Indication: EPILEPSY
     Dosage: TRANSPLACENTAL
     Route: 064
     Dates: end: 20100501
  5. ONFI [Suspect]
     Indication: EPILEPSY
     Dosage: 5 MG MILLIGRAM(S), 1 IN 1 D, TRANSPLACENTAL
     Route: 064
     Dates: end: 20100501

REACTIONS (10)
  - TOXICITY TO VARIOUS AGENTS [None]
  - DUCTUS ARTERIOSUS PREMATURE CLOSURE [None]
  - ABSCESS OF EXTERNAL AUDITORY MEATUS [None]
  - ULTRASOUND KIDNEY ABNORMAL [None]
  - METABOLIC ACIDOSIS [None]
  - EAR MALFORMATION [None]
  - MATERNAL DRUGS AFFECTING FOETUS [None]
  - HEARING IMPAIRED [None]
  - ANOGENITAL WARTS [None]
  - RENAL DYSPLASIA [None]
